FAERS Safety Report 6985527-0 (Version None)
Quarter: 2010Q3

REPORT INFORMATION
  Report Type: 
  Country: None (occurrence: None)
  Receive Date: 20100915
  Receipt Date: 20100831
  Transmission Date: 20110219
  Serious: Yes (Other)
  Sender: FDA-Public Use
  Company Number: CA-JNJFOC-20100903288

PATIENT

DRUGS (1)
  1. SODIUM/POTASSIUM PHOSPHATE [Suspect]
     Indication: PRODUCT USED FOR UNKNOWN INDICATION
     Dosage: 90 ML OF FLEET PHOSPHOSODA
     Route: 048

REACTIONS (3)
  - HYPERPHOSPHATAEMIA [None]
  - HYPOCALCAEMIA [None]
  - OVERDOSE [None]
